FAERS Safety Report 4939926-9 (Version None)
Quarter: 2006Q1

REPORT INFORMATION
  Report Type: 
  Country: None (occurrence: None)
  Receive Date: 20060310
  Receipt Date: 20060220
  Transmission Date: 20060701
  Serious: Yes (Hospitalization)
  Sender: FDA-Public Use
  Company Number: JP-JPN-A200600685

PATIENT
  Age: 58 Year
  Sex: Male
  Weight: 57 kg

DRUGS (7)
  1. VALTREX [Suspect]
     Indication: HERPES SIMPLEX
     Route: 048
     Dates: start: 20060101, end: 20060220
  2. ZOVIRAX [Suspect]
     Indication: HERPES SIMPLEX
     Dates: start: 20060202, end: 20060207
  3. NORVASC [Concomitant]
     Indication: HYPERTENSION
     Dosage: 5MG PER DAY
     Route: 048
     Dates: start: 20051219
  4. LANSOPRAZOLE [Concomitant]
     Dosage: 30MG PER DAY
     Route: 048
     Dates: start: 20051219
  5. NOVORAPID [Concomitant]
     Indication: DIABETES MELLITUS
     Dosage: 10IU TWICE PER DAY
     Route: 058
     Dates: start: 20051219
  6. BRIPLATIN [Concomitant]
     Dosage: 30MG PER DAY
     Route: 042
     Dates: start: 20051216, end: 20060127
  7. FLUOROURACIL [Concomitant]
     Dosage: 1500MG PER DAY
     Route: 042
     Dates: start: 20051226, end: 20060127

REACTIONS (3)
  - BLOOD CREATININE INCREASED [None]
  - BLOOD UREA INCREASED [None]
  - RENAL IMPAIRMENT [None]
